FAERS Safety Report 9022577 (Version 1)
Quarter: 2013Q1

REPORT INFORMATION
  Report Type: Spontaneous
  Country: US (occurrence: US)
  Receive Date: 20130118
  Receipt Date: 20130118
  Transmission Date: 20140127
  Serious: No
  Sender: FDA-Public Use
  Company Number: US-GLAXOSMITHKLINE-A0988671A

PATIENT
  Age: 63 Year
  Sex: Female

DRUGS (7)
  1. PROMACTA [Suspect]
     Indication: AUTOIMMUNE THROMBOCYTOPENIA
     Dosage: 50MG PER DAY
     Route: 048
     Dates: start: 20120802
  2. NATEGLINIDE [Concomitant]
  3. LISINOPRIL [Concomitant]
  4. PREDNISONE [Concomitant]
  5. ACTOS [Concomitant]
  6. NOVOLOG [Concomitant]
  7. LEVEMIR [Concomitant]
     Dosage: 6UNIT AT NIGHT

REACTIONS (2)
  - Headache [Unknown]
  - Muscular weakness [Unknown]
